FAERS Safety Report 11113313 (Version 4)
Quarter: 2015Q3

REPORT INFORMATION
  Report Type: Report from Study
  Country: US (occurrence: US)
  Receive Date: 20150514
  Receipt Date: 20150917
  Transmission Date: 20151125
  Serious: Yes (Other)
  Sender: FDA-Public Use
  Company Number: US-BAYER-2015-114381

PATIENT
  Age: 55 Year
  Sex: Female
  Weight: 61.68 kg

DRUGS (20)
  1. NEXAVAR [Suspect]
     Active Substance: SORAFENIB
     Indication: HEPATIC CANCER
     Dosage: 400 MG, BID
     Route: 048
     Dates: start: 20150410, end: 201505
  2. HYDROCHLOROTHIAZIDE. [Concomitant]
     Active Substance: HYDROCHLOROTHIAZIDE
  3. NEXAVAR [Suspect]
     Active Substance: SORAFENIB
     Indication: HEPATIC CANCER
     Dosage: 200 MG, BID
     Route: 048
     Dates: start: 20150325
  4. CLOPIDOGREL [Concomitant]
     Active Substance: CLOPIDOGREL BISULFATE
  5. PLAVIX [Concomitant]
     Active Substance: CLOPIDOGREL BISULFATE
  6. PROMETHAZINE [Concomitant]
     Active Substance: PROMETHAZINE\PROMETHAZINE HYDROCHLORIDE
  7. HYDROMORPHONE [Concomitant]
     Active Substance: HYDROMORPHONE
  8. PANTOPRAZOLE [Concomitant]
     Active Substance: PANTOPRAZOLE SODIUM
  9. METRONIDAZOLE. [Concomitant]
     Active Substance: METRONIDAZOLE
  10. AMLODIPINE BESYLATE. [Concomitant]
     Active Substance: AMLODIPINE BESYLATE
  11. FOLIC ACID. [Concomitant]
     Active Substance: FOLIC ACID
  12. METHYLPREDNISOLONE [METHYLPREDNISOLONE] [Concomitant]
     Active Substance: METHYLPREDNISOLONE
  13. HYDROCODONE W/ACETAMINOPHEN [Concomitant]
     Active Substance: ACETAMINOPHEN\HYDROCODONE BITARTRATE
  14. GABAPENTIN. [Concomitant]
     Active Substance: GABAPENTIN
  15. VITAMIN D2 [Concomitant]
     Active Substance: ERGOCALCIFEROL
  16. LOSARTAN. [Concomitant]
     Active Substance: LOSARTAN
  17. PRAVASTATIN [Concomitant]
     Active Substance: PRAVASTATIN\PRAVASTATIN SODIUM
  18. METOPROLOL TARTRATE. [Concomitant]
     Active Substance: METOPROLOL TARTRATE
  19. MIRTAZAPINE. [Concomitant]
     Active Substance: MIRTAZAPINE
  20. ASPIRIN. [Concomitant]
     Active Substance: ASPIRIN

REACTIONS (8)
  - Memory impairment [Unknown]
  - Pain in extremity [Unknown]
  - Drug dose omission [None]
  - Blood pressure inadequately controlled [Unknown]
  - Muscle spasms [Unknown]
  - Drug ineffective [None]
  - Blood pressure increased [Recovering/Resolving]
  - Faeces pale [Unknown]

NARRATIVE: CASE EVENT DATE: 20150401
